FAERS Safety Report 5900619-2 (Version None)
Quarter: 2008Q3

REPORT INFORMATION
  Report Type: 
  Country: None (occurrence: None)
  Receive Date: 20080926
  Receipt Date: 20080916
  Transmission Date: 20090109
  Serious: Yes (Hospitalization)
  Sender: FDA-Public Use
  Company Number: US-GILEAD-2008-0018146

PATIENT
  Sex: Male
  Weight: 84.1 kg

DRUGS (18)
  1. AMBRISENTAN [Suspect]
     Indication: PULMONARY ARTERIAL HYPERTENSION
     Dates: start: 20070619
  2. AMBRISENTAN [Suspect]
     Dates: start: 20070309, end: 20070618
  3. SILDENAFIL CITRATE [Concomitant]
     Indication: PULMONARY ARTERIAL HYPERTENSION
     Route: 048
     Dates: start: 20080423
  4. SILDENAFIL CITRATE [Concomitant]
     Route: 048
     Dates: start: 20071019, end: 20080422
  5. WARFARIN SODIUM [Concomitant]
     Indication: PULMONARY ARTERIAL HYPERTENSION
     Route: 048
     Dates: start: 20071012
  6. WARFARIN SODIUM [Concomitant]
     Route: 048
     Dates: start: 20071012
  7. HEPARIN [Concomitant]
  8. TORSEMIDE [Concomitant]
     Indication: FLUID RETENTION
     Route: 048
     Dates: start: 20080211
  9. TORSEMIDE [Concomitant]
     Indication: PULMONARY ARTERIAL HYPERTENSION
  10. DIGOXIN [Concomitant]
     Indication: CARDIAC FAILURE
     Route: 048
     Dates: start: 20080106
  11. OXYGEN [Concomitant]
     Indication: PULMONARY ARTERIAL HYPERTENSION
     Dosage: 5 LITER/MIN
     Route: 055
     Dates: start: 20080306
  12. OXYGEN [Concomitant]
     Dosage: 3-4 / 4MIN
     Route: 055
     Dates: start: 20071120, end: 20080305
  13. OXYGEN [Concomitant]
     Dosage: 5 / 4MIN
     Route: 055
     Dates: start: 20070422, end: 20070430
  14. EPOETIN [Concomitant]
     Indication: ANAEMIA
     Route: 042
     Dates: start: 20080106
  15. ALLOPURINOL [Concomitant]
     Indication: GOUT
     Route: 048
     Dates: start: 20071206
  16. LEVOTHYROXINE SODIUM [Concomitant]
     Indication: HYPOTHYROIDISM
     Route: 048
     Dates: start: 20080211
  17. PANTOPRAZOLE SODIUM [Concomitant]
     Indication: GASTROOESOPHAGEAL REFLUX DISEASE
     Route: 048
     Dates: start: 20080106
  18. SPIRONOLACTONE [Concomitant]
     Indication: FLUID RETENTION
     Route: 048
     Dates: start: 20080211

REACTIONS (1)
  - GASTROINTESTINAL HAEMORRHAGE [None]
